FAERS Safety Report 13764352 (Version 2)
Quarter: 2017Q4

REPORT INFORMATION
  Report Type: Spontaneous
  Country: US (occurrence: US)
  Receive Date: 20170718
  Receipt Date: 20171017
  Transmission Date: 20180320
  Serious: No
  Sender: FDA-Public Use
  Company Number: US-NOVOPROD-546928

PATIENT
  Age: 69 Year
  Sex: Female

DRUGS (2)
  1. TRESIBA [Suspect]
     Active Substance: INSULIN DEGLUDEC
     Indication: TYPE 2 DIABETES MELLITUS
     Dosage: 20 U, QD
     Route: 058
     Dates: start: 201704, end: 201705
  2. NOVOLOG [Concomitant]
     Active Substance: INSULIN ASPART
     Indication: TYPE 2 DIABETES MELLITUS
     Route: 058
     Dates: start: 2015

REACTIONS (6)
  - Blood potassium increased [Not Recovered/Not Resolved]
  - Abdominal pain upper [Recovered/Resolved]
  - Weight increased [Recovering/Resolving]
  - Blood glucose increased [Recovered/Resolved]
  - Sluggishness [Recovered/Resolved]
  - Drug ineffective [Recovered/Resolved]

NARRATIVE: CASE EVENT DATE: 2017
